FAERS Safety Report 6216963-8 (Version None)
Quarter: 2009Q2

REPORT INFORMATION
  Report Type: 
  Country: None (occurrence: None)
  Receive Date: 20090604
  Receipt Date: 20090522
  Transmission Date: 20091009
  Serious: Yes (Hospitalization)
  Sender: FDA-Public Use
  Company Number: 234945K09USA

PATIENT
  Age: 47 Year
  Sex: Female
  Weight: 79 kg

DRUGS (6)
  1. REBIF [Suspect]
     Indication: MULTIPLE SCLEROSIS
     Dosage: 44 MCG, 3 IN 1 WEEKS, SUBCUTANEOUS
     Route: 058
     Dates: start: 20030917
  2. WELCOHOL     (COLESEVELAM HYDROCHLORIDE) [Concomitant]
  3. FLAXSEED OIL      (LINUM USITATISSIMUM SEED OIL) [Concomitant]
  4. VITAMIN D [Concomitant]
  5. VITAMIN B COMPLEX (B-KOMPLEX) [Concomitant]
  6. CRANBERRY MEDICATION (VACCINIUM MACROCARPON) [Concomitant]

REACTIONS (8)
  - DYSSTASIA [None]
  - FALL [None]
  - FATIGUE [None]
  - MEMORY IMPAIRMENT [None]
  - MUSCULAR WEAKNESS [None]
  - OSTEOPOROSIS [None]
  - PAIN [None]
  - SENSATION OF HEAVINESS [None]
